FAERS Safety Report 25234954 (Version 1)
Quarter: 2025Q2

REPORT INFORMATION
  Report Type: Report from Study
  Country: US (occurrence: US)
  Receive Date: 20250424
  Receipt Date: 20250424
  Transmission Date: 20250716
  Serious: Yes (Other)
  Sender: AMGEN
  Company Number: US-AMGEN-USASL2025078936

PATIENT
  Age: 37 Year
  Sex: Female

DRUGS (1)
  1. AMJEVITA [Suspect]
     Active Substance: ADALIMUMAB-ATTO
     Indication: Ankylosing spondylitis
     Dosage: UNK UNK, Q2WK
     Route: 065
     Dates: start: 20250402

REACTIONS (5)
  - Neuropathy peripheral [Unknown]
  - Adverse drug reaction [Recovering/Resolving]
  - Dizziness [Unknown]
  - Paraesthesia [Unknown]
  - Tremor [Unknown]

NARRATIVE: CASE EVENT DATE: 20250402
